FAERS Safety Report 14347330 (Version 2)
Quarter: 2018Q1

REPORT INFORMATION
  Report Type: Spontaneous
  Country: US (occurrence: US)
  Receive Date: 20180103
  Receipt Date: 20180110
  Transmission Date: 20180509
  Serious: No
  Sender: FDA-Public Use
  Company Number: US-BEH-2017086223

PATIENT
  Sex: Female

DRUGS (3)
  1. HIZENTRA [Suspect]
     Active Substance: HUMAN IMMUNOGLOBULIN G
     Indication: PRODUCT USED FOR UNKNOWN INDICATION
     Dosage: 10 G (50 ML), UNK
     Route: 065
  2. HIZENTRA [Suspect]
     Active Substance: HUMAN IMMUNOGLOBULIN G
     Dosage: 1 G (5 ML), UNK
     Route: 065
  3. HIZENTRA [Suspect]
     Active Substance: HUMAN IMMUNOGLOBULIN G
     Dosage: 4 G (20 ML), UNK
     Route: 065

REACTIONS (1)
  - No adverse event [Unknown]
